FAERS Safety Report 9224360 (Version 1)
Quarter: 2013Q2

REPORT INFORMATION
  Report Type: Spontaneous
  Country: US (occurrence: None)
  Receive Date: 20130409
  Receipt Date: 20130409
  Transmission Date: 20140414
  Serious: No
  Sender: FDA-Public Use
  Company Number: None

PATIENT
  Age: 47 Year
  Sex: Female

DRUGS (1)
  1. LEVOTHYROXINE SODIUM [Suspect]
     Indication: HYPOTHYROIDISM
     Route: 048

REACTIONS (9)
  - Urticaria [None]
  - Pruritus [None]
  - Anxiety [None]
  - Irritability [None]
  - Nervousness [None]
  - Flushing [None]
  - Swollen tongue [None]
  - Onychoclasis [None]
  - Haemorrhage [None]
